FAERS Safety Report 7460864-4 (Version None)
Quarter: 2011Q2

REPORT INFORMATION
  Report Type: 
  Country: None (occurrence: None)
  Receive Date: 20110505
  Receipt Date: 20110224
  Transmission Date: 20111010
  Serious: Yes (Other)
  Sender: FDA-Public Use
  Company Number: US-AMGEN-US362560

PATIENT
  Age: 74 Year
  Sex: Female
  Weight: 67 kg

DRUGS (11)
  1. DANAZOL [Concomitant]
     Dosage: UNK UNK, UNK
     Route: 065
     Dates: start: 20080820
  2. METHYLPREDNISOLONE SODIUM SUCCINATE [Concomitant]
     Dosage: UNK UNK, UNK
     Dates: start: 20081010
  3. IMMUNOGLOBULINS [Concomitant]
     Dosage: UNK UNK, PRN
     Route: 042
     Dates: start: 20021108
  4. CYANOCOBALAMIN [Concomitant]
     Dosage: 1000 A?G, UNK
     Dates: start: 20080924
  5. RANITIDINE HYDROCHLORIDE [Concomitant]
     Dosage: 50 MG, UNK
     Dates: start: 20081010
  6. FERRLECIT [Concomitant]
     Dosage: 125 MG, UNK
     Dates: start: 20081022
  7. NPLATE [Suspect]
     Dates: start: 20080924, end: 20081224
  8. PLATELETS [Concomitant]
     Dosage: UNK UNK, UNK
     Dates: start: 20080617, end: 20090225
  9. NPLATE [Suspect]
     Indication: IDIOPATHIC THROMBOCYTOPENIC PURPURA
     Dosage: 10 A?G/KG, QWK
     Route: 058
     Dates: start: 20080924, end: 20081224
  10. DIPHENHYDRAMINE HYDROCHLORIDE [Concomitant]
     Dosage: 12.5 MG, UNK
     Dates: start: 20081010
  11. ACETAMINOPHEN [Concomitant]
     Dosage: 1000 MG, UNK
     Dates: start: 20081010

REACTIONS (2)
  - THERAPEUTIC RESPONSE DECREASED [None]
  - DRUG INEFFECTIVE [None]
